FAERS Safety Report 17985485 (Version 2)
Quarter: 2020Q3

REPORT INFORMATION
  Report Type: Spontaneous
  Country: GB (occurrence: GB)
  Receive Date: 20200706
  Receipt Date: 20200714
  Transmission Date: 20201103
  Serious: Yes (Death, Hospitalization, Other)
  Sender: FDA-Public Use
  Company Number: GB-PFIZER INC-2020255799

PATIENT
  Age: 70 Year
  Sex: Male

DRUGS (1)
  1. EFEXOR XL [Suspect]
     Active Substance: VENLAFAXINE HYDROCHLORIDE
     Dosage: 187.5 MG, 2X/DAY

REACTIONS (3)
  - Intestinal obstruction [Unknown]
  - Cholecystitis [Unknown]
  - Intestinal perforation [Fatal]

NARRATIVE: CASE EVENT DATE: 202006
